APPROVED DRUG PRODUCT: TRANEXAMIC ACID
Active Ingredient: TRANEXAMIC ACID
Strength: 650MG
Dosage Form/Route: TABLET;ORAL
Application: A203256 | Product #001 | TE Code: AB
Applicant: ANI PHARMACEUTICALS INC
Approved: Jul 25, 2016 | RLD: No | RS: No | Type: RX